FAERS Safety Report 4559405-0 (Version None)
Quarter: 2005Q1

REPORT INFORMATION
  Report Type: 
  Country: None (occurrence: None)
  Receive Date: 20050119
  Receipt Date: 20050111
  Transmission Date: 20050727
  Serious: Yes (Life-Threatening)
  Sender: FDA-Public Use
  Company Number: 2005012334

PATIENT
  Age: 79 Year
  Sex: Male
  Weight: 74 kg

DRUGS (6)
  1. ZYVOX [Suspect]
     Indication: URINARY TRACT INFECTION
     Dosage: (600 MG)
     Dates: start: 20041217
  2. PREDNISOLONE [Suspect]
     Indication: CHRONIC OBSTRUCTIVE PULMONARY DISEASE
     Dosage: 10 MG (10 MG, EVERY DAY)
     Dates: start: 20041204, end: 20041216
  3. ASPIRIN [Suspect]
     Indication: CEREBROVASCULAR ACCIDENT
     Dosage: 300 MG) ORAL
     Route: 048
     Dates: start: 20041213, end: 20041222
  4. COMBIVENT [Concomitant]
  5. SIMVASTATIN [Concomitant]
  6. FRESUBIN (CARBOHYDRATES NOS, FATTY ACIDS NOS, MINERALS NOS, PROTEINS N [Concomitant]

REACTIONS (1)
  - RECTAL HAEMORRHAGE [None]
